FAERS Safety Report 10016488 (Version 1)
Quarter: 2014Q1

REPORT INFORMATION
  Report Type: Spontaneous
  Country: GB (occurrence: GB)
  Receive Date: 20140317
  Receipt Date: 20140317
  Transmission Date: 20141002
  Serious: Yes (Other)
  Sender: FDA-Public Use
  Company Number: GB-WATSON-2014-04698

PATIENT
  Age: 60 Year
  Sex: Female

DRUGS (1)
  1. CITALOPRAM (UNKNOWN) [Suspect]
     Indication: DEPRESSION
     Dosage: 10 MG, DAILY
     Route: 048
     Dates: start: 20140210, end: 20140214

REACTIONS (15)
  - Confusional state [Recovered/Resolved]
  - Vomiting [Recovered/Resolved]
  - Diarrhoea [Recovered/Resolved]
  - Gastrooesophageal reflux disease [Recovered/Resolved]
  - Dysgeusia [Recovered/Resolved]
  - Nausea [Recovered/Resolved]
  - Decreased appetite [Recovered/Resolved]
  - Anxiety [Recovered/Resolved]
  - Insomnia [Recovered/Resolved]
  - Tremor [Recovered/Resolved]
  - Night sweats [Recovered/Resolved]
  - Abnormal dreams [Recovered/Resolved]
  - Agitation [Recovered/Resolved]
  - Dry mouth [Recovered/Resolved]
  - Yawning [Recovered/Resolved]
